FAERS Safety Report 4417114-2 (Version None)
Quarter: 2004Q3

REPORT INFORMATION
  Report Type: 
  Country: None (occurrence: None)
  Receive Date: 20040802
  Receipt Date: 20040722
  Transmission Date: 20050211
  Serious: Yes (Hospitalization)
  Sender: FDA-Public Use
  Company Number: 04P-163-0268128-00

PATIENT
  Age: 12 Year
  Sex: Female

DRUGS (1)
  1. DEPAKOTE [Suspect]
     Indication: MUSCLE SPASTICITY
     Dosage: 250 MG, 1 IN 1 D, ORAL
     Route: 048
     Dates: start: 20040601, end: 20040601

REACTIONS (1)
  - CHOREA [None]
